FAERS Safety Report 10618806 (Version 5)
Quarter: 2015Q2

REPORT INFORMATION
  Report Type: Spontaneous
  Country: US (occurrence: None)
  Receive Date: 20141125
  Receipt Date: 20150504
  Transmission Date: 20150821
  Serious: Yes (Other)
  Sender: FDA-Public Use
  Company Number: ABR_01867_2014

PATIENT
  Age: 68 Year
  Sex: Female
  Weight: 81.65 kg

DRUGS (5)
  1. EDARBYCLOR [Suspect]
     Active Substance: AZILSARTAN KAMEDOXOMIL\CHLORTHALIDONE
     Indication: HYPERTENSION
     Dosage: 40 MG 5X/WEEK
     Route: 048
     Dates: start: 20141114, end: 20141114
  2. LETROZOLE. [Concomitant]
     Active Substance: LETROZOLE
  3. EDARBI [Suspect]
     Active Substance: AZILSARTAN KAMEDOXOMIL
     Indication: HYPERTENSION
     Dosage: 80 MG
     Dates: start: 201411, end: 201411
  4. LEVOTHYROXINE [Concomitant]
     Active Substance: LEVOTHYROXINE
  5. DIOVAN [Concomitant]
     Active Substance: VALSARTAN

REACTIONS (9)
  - Feeling abnormal [None]
  - Loss of consciousness [None]
  - Chills [None]
  - Syncope [None]
  - Asthenia [None]
  - Refusal of treatment by patient [None]
  - Hypotension [None]
  - Nausea [None]
  - Tremor [None]

NARRATIVE: CASE EVENT DATE: 20141114
